FAERS Safety Report 21005762 (Version 2)
Quarter: 2025Q1

REPORT INFORMATION
  Report Type: Spontaneous
  Country: DE (occurrence: DE)
  Receive Date: 20220624
  Receipt Date: 20250103
  Transmission Date: 20250408
  Serious: Yes (Death, Hospitalization, Other)
  Sender: MERCK
  Company Number: DE-009507513-2206DEU006983

PATIENT

DRUGS (2)
  1. PEMBROLIZUMAB [Suspect]
     Active Substance: PEMBROLIZUMAB
     Indication: Clear cell renal cell carcinoma
  2. LENVATINIB MESYLATE [Suspect]
     Active Substance: LENVATINIB MESYLATE
     Indication: Clear cell renal cell carcinoma
     Route: 048

REACTIONS (31)
  - Death [Fatal]
  - Nephrectomy [Unknown]
  - Azotaemia [Unknown]
  - Azotaemia [Unknown]
  - Infection [Unknown]
  - Subileus [Unknown]
  - Ileus [Unknown]
  - Posterior reversible encephalopathy syndrome [Unknown]
  - Transient ischaemic attack [Unknown]
  - Acute myocardial infarction [Unknown]
  - Myocardial ischaemia [Unknown]
  - Hyponatraemic seizure [Unknown]
  - Malignant neoplasm progression [Unknown]
  - Hypothyroidism [Unknown]
  - Hypophysitis [Unknown]
  - Thyroiditis [Unknown]
  - Therapy partial responder [Unknown]
  - Transaminases increased [Unknown]
  - Rash [Unknown]
  - Pruritus [Unknown]
  - Skin disorder [Unknown]
  - Hypertension [Unknown]
  - Nausea [Unknown]
  - Vomiting [Unknown]
  - Dysphonia [Unknown]
  - Mucosal inflammation [Unknown]
  - Arthralgia [Unknown]
  - Asthenia [Unknown]
  - Palmar-plantar erythrodysaesthesia syndrome [Unknown]
  - Diarrhoea [Unknown]
  - Fatigue [Unknown]
